FAERS Safety Report 23081039 (Version 1)
Quarter: 2023Q4

REPORT INFORMATION
  Report Type: Spontaneous
  Country: US (occurrence: US)
  Receive Date: 20231018
  Receipt Date: 20231018
  Transmission Date: 20240110
  Serious: No
  Sender: FDA-Public Use
  Company Number: US-BRISTOL-MYERS SQUIBB COMPANY-2023-140824

PATIENT
  Age: 79 Year

DRUGS (9)
  1. ELIQUIS [Suspect]
     Active Substance: APIXABAN
     Indication: Product used for unknown indication
  2. AMIODARONE [Suspect]
     Active Substance: AMIODARONE
     Indication: Product used for unknown indication
  3. MAGNESIUM [Suspect]
     Active Substance: MAGNESIUM
     Indication: Product used for unknown indication
  4. IRON [Suspect]
     Active Substance: IRON
     Indication: Product used for unknown indication
  5. ZINC [Suspect]
     Active Substance: ZINC
     Indication: Product used for unknown indication
  6. VALSARTAN [Suspect]
     Active Substance: VALSARTAN
     Indication: Product used for unknown indication
  7. CARVEDILOL [Suspect]
     Active Substance: CARVEDILOL
     Indication: Product used for unknown indication
  8. FAMOTIDINE [Suspect]
     Active Substance: FAMOTIDINE
     Indication: Product used for unknown indication
  9. TROSPIUM [Suspect]
     Active Substance: TROSPIUM
     Indication: Product used for unknown indication

REACTIONS (7)
  - Urinary tract infection [Unknown]
  - Confusional state [Unknown]
  - Pain in extremity [Unknown]
  - Chest pain [Unknown]
  - Oropharyngeal pain [Unknown]
  - Pain in extremity [Unknown]
  - Fear [Unknown]
